FAERS Safety Report 8301561-2 (Version None)
Quarter: 2012Q2

REPORT INFORMATION
  Report Type: 
  Country: None (occurrence: None)
  Receive Date: 20120420
  Receipt Date: 20120413
  Transmission Date: 20120825
  Serious: Yes (Life-Threatening, Hospitalization)
  Sender: FDA-Public Use
  Company Number: JP-EISAI INC-E7389-02326-CLI-JP

PATIENT
  Sex: Female
  Weight: 51 kg

DRUGS (9)
  1. HALAVEN [Suspect]
     Indication: METASTASES TO BONE
  2. DEXAMETHASONE SODIUM PHOSPHATE [Concomitant]
     Indication: PROPHYLAXIS
     Route: 041
  3. MEDICON [Concomitant]
     Route: 048
  4. GRAN [Concomitant]
     Indication: PROPHYLAXIS
     Route: 041
  5. HALAVEN [Suspect]
     Indication: BREAST CANCER RECURRENT
     Route: 041
     Dates: start: 20111107, end: 20120106
  6. HALAVEN [Suspect]
     Indication: METASTASES TO LIVER
  7. HALAVEN [Suspect]
     Indication: METASTASES TO LUNG
  8. MORPHINE [Concomitant]
     Route: 048
  9. ZOMETA [Concomitant]
     Indication: METASTASES TO BONE
     Route: 041

REACTIONS (4)
  - LEUKOPENIA [None]
  - ASPARTATE AMINOTRANSFERASE INCREASED [None]
  - BLOOD BILIRUBIN INCREASED [None]
  - ALANINE AMINOTRANSFERASE INCREASED [None]
